FAERS Safety Report 9644872 (Version 1)
Quarter: 2013Q4

REPORT INFORMATION
  Report Type: Report from Study
  Country: DE (occurrence: DE)
  Receive Date: 20131025
  Receipt Date: 20131025
  Transmission Date: 20140711
  Serious: Yes (Other)
  Sender: FDA-Public Use
  Company Number: PHHY2013DE120439

PATIENT
  Sex: Female

DRUGS (5)
  1. FTY 720 [Suspect]
     Indication: MULTIPLE SCLEROSIS
     Dosage: 0.5 MG, QD
     Route: 048
     Dates: start: 20110427
  2. OPIPRAMOL [Concomitant]
     Dosage: 50 MG, DAILY
     Dates: start: 20080714
  3. IBUBETA [Concomitant]
     Dosage: 100 MG, DAILY
     Dates: start: 20071119
  4. RANITIDIN [Concomitant]
     Indication: ABDOMINAL DISCOMFORT
     Dosage: 150 MG, PRN
     Dates: start: 20120424
  5. URBASON                                 /GFR/ [Concomitant]
     Dosage: 40 MG, PRN
     Dates: start: 20120424

REACTIONS (1)
  - Glaucoma [Unknown]
